FAERS Safety Report 18353694 (Version 1)
Quarter: 2020Q4

REPORT INFORMATION
  Report Type: Spontaneous
  Country: CN (occurrence: CN)
  Receive Date: 20201007
  Receipt Date: 20201007
  Transmission Date: 20210114
  Serious: Yes (Other)
  Sender: FDA-Public Use
  Company Number: CN-SUN PHARMACEUTICAL INDUSTRIES LTD-2020R1-263269

PATIENT
  Age: 45 Year
  Sex: Male

DRUGS (5)
  1. IFOSFAMIDE. [Suspect]
     Active Substance: IFOSFAMIDE
     Indication: CHEMOTHERAPY
     Dosage: UNK
     Route: 065
  2. CHIDAMIDE [Suspect]
     Active Substance: TUCIDINOSTAT
     Dosage: 30 MILLIGRAM, TWICE A WEEK
     Route: 065
  3. CARBOPLATIN. [Suspect]
     Active Substance: CARBOPLATIN
     Indication: CHEMOTHERAPY
     Dosage: UNK
     Route: 065
  4. ETOPOSIDE. [Suspect]
     Active Substance: ETOPOSIDE
     Indication: CHEMOTHERAPY
     Dosage: UNK
     Route: 065
  5. CHIDAMIDE [Suspect]
     Active Substance: TUCIDINOSTAT
     Indication: CHEMOTHERAPY
     Dosage: 20 MILLIGRAM, TWICE A WEEK
     Route: 065

REACTIONS (1)
  - Therapy partial responder [Unknown]
